FAERS Safety Report 4307010-3 (Version None)
Quarter: 2004Q1

REPORT INFORMATION
  Report Type: 
  Country: None (occurrence: None)
  Receive Date: 20040225
  Receipt Date: 20040210
  Transmission Date: 20041129
  Serious: Yes (Life-Threatening)
  Sender: FDA-Public Use
  Company Number: JPT 2004 0001

PATIENT
  Age: 77 Year
  Sex: Male

DRUGS (1)
  1. IMAGENIL 350 [Suspect]
     Indication: ANGIOGRAM
     Dosage: 30 ML, IA
     Route: 013
     Dates: start: 20040206

REACTIONS (3)
  - CARDIO-RESPIRATORY ARREST [None]
  - DYSPNOEA [None]
  - OEDEMA [None]
